FAERS Safety Report 7688392-1 (Version None)
Quarter: 2011Q3

REPORT INFORMATION
  Report Type: 
  Country: None (occurrence: None)
  Receive Date: 20110817
  Receipt Date: 20110805
  Transmission Date: 20111222
  Serious: Yes (Hospitalization, Other)
  Sender: FDA-Public Use
  Company Number: US-SANOFI-AVENTIS-2011SA044398

PATIENT
  Age: 84 Year
  Sex: Female
  Weight: 52 kg

DRUGS (27)
  1. HEPARIN [Concomitant]
     Dates: start: 20101109, end: 20101109
  2. INDAPAMIDE [Concomitant]
  3. PROPYLTHIOURACIL [Concomitant]
     Dates: start: 20101107
  4. BISACODYL [Concomitant]
     Dates: start: 20101110, end: 20101110
  5. PROPYLTHIOURACIL [Concomitant]
     Dates: start: 20110124
  6. FAMOTIDINE [Concomitant]
     Dates: start: 20101107, end: 20101120
  7. TEMAZEPAM [Concomitant]
     Dates: start: 20101107, end: 20101119
  8. HEPARIN [Concomitant]
     Dates: start: 20101115, end: 20101116
  9. CEFTRIAXONE [Concomitant]
     Dates: start: 20110124
  10. FUROSEMIDE [Concomitant]
     Dates: start: 20110124, end: 20110124
  11. ASPIRIN [Concomitant]
     Dates: start: 20110124, end: 20110202
  12. CEFDINIR [Concomitant]
     Dates: start: 20101027
  13. DIGOXIN [Concomitant]
     Dates: end: 20101106
  14. DIGOXIN [Concomitant]
  15. DILTIAZEM [Concomitant]
  16. SIMAVASTATIN [Concomitant]
  17. FUROSEMIDE [Concomitant]
     Dates: start: 20101101, end: 20101106
  18. PANTOPRAZOLE [Concomitant]
     Dates: start: 20110124
  19. VANCOMYCIN [Concomitant]
     Dates: start: 20110125, end: 20110125
  20. DRONEDARONE HCL [Suspect]
     Indication: ATRIAL FIBRILLATION
     Route: 048
     Dates: start: 20101021, end: 20101026
  21. CARVEDILOL [Concomitant]
  22. WARFARIN SODIUM [Concomitant]
  23. CARVEDILOL [Concomitant]
     Dates: start: 20101030
  24. DIGOXIN [Concomitant]
     Dates: start: 20110124
  25. POTASSIUM [Concomitant]
     Dates: start: 20101112
  26. AZITHROMYCIN [Concomitant]
     Dates: start: 20110124
  27. GUAIFENESIN [Concomitant]
     Dates: start: 20110125

REACTIONS (3)
  - MUSCULOSKELETAL CHEST PAIN [None]
  - CARDIAC FAILURE [None]
  - PNEUMONIA STREPTOCOCCAL [None]
